FAERS Safety Report 18552240 (Version 1)
Quarter: 2020Q4

REPORT INFORMATION
  Report Type: Spontaneous
  Country: US (occurrence: US)
  Receive Date: 20201127
  Receipt Date: 20201127
  Transmission Date: 20210114
  Serious: No
  Sender: FDA-Public Use
  Company Number: US-SA-2020SA340288

PATIENT

DRUGS (1)
  1. SELSUN BLUE MEDICATED [Suspect]
     Active Substance: SELENIUM SULFIDE
     Dosage: UNK

REACTIONS (2)
  - Therapeutic response decreased [Unknown]
  - Ear pruritus [Not Recovered/Not Resolved]

NARRATIVE: CASE EVENT DATE: 2020
